FAERS Safety Report 9277245 (Version 1)
Quarter: 2013Q2

REPORT INFORMATION
  Report Type: Spontaneous
  Country: US (occurrence: US)
  Receive Date: 20130508
  Receipt Date: 20130508
  Transmission Date: 20140414
  Serious: Yes (Hospitalization)
  Sender: FDA-Public Use
  Company Number: US-RANBAXY-2013US-68403

PATIENT
  Age: 92 Year
  Sex: Female

DRUGS (4)
  1. ACETAMINOPHEN [Suspect]
     Indication: ARTHRITIS
     Dosage: UNK
     Route: 065
  2. ACETAMINOPHEN [Interacting]
     Indication: PAIN
  3. CIPROFLOXACIN [Suspect]
     Indication: GASTRIC INFECTION
     Dosage: UNK
     Route: 065
     Dates: start: 201207
  4. COUMADIN [Interacting]
     Indication: PRODUCT USED FOR UNKNOWN INDICATION
     Dosage: UNK
     Route: 065

REACTIONS (3)
  - Haemorrhage [Unknown]
  - Arthropathy [Unknown]
  - Drug interaction [Unknown]
